FAERS Safety Report 17580837 (Version 1)
Quarter: 2020Q1

REPORT INFORMATION
  Report Type: Spontaneous
  Country: IT (occurrence: IT)
  Receive Date: 20200325
  Receipt Date: 20200325
  Transmission Date: 20200409
  Serious: Yes (Hospitalization)
  Sender: FDA-Public Use
  Company Number: IT-ADHERA THERAPEUTICS, INC.-2020ADHERA000626

PATIENT

DRUGS (2)
  1. REAPTAN [Suspect]
     Active Substance: AMLODIPINE BESYLATE\PERINDOPRIL ARGININE
     Indication: HYPERTENSION
     Dosage: 0.5 (5MG/5MG) TABLET, QD
     Route: 048
     Dates: start: 20190701, end: 20191018
  2. COSOPT [Suspect]
     Active Substance: DORZOLAMIDE HYDROCHLORIDE\TIMOLOL MALEATE
     Indication: GLAUCOMA
     Dosage: 1 (20MG/ML / 5MG/ML) DROP, BID
     Route: 047
     Dates: start: 20190710, end: 20191018

REACTIONS (7)
  - Eye inflammation [Unknown]
  - Product use issue [Unknown]
  - Lacrimation increased [Unknown]
  - Generalised tonic-clonic seizure [Not Recovered/Not Resolved]
  - Glaucoma [Unknown]
  - Hypotension [Not Recovered/Not Resolved]
  - Eye swelling [Unknown]

NARRATIVE: CASE EVENT DATE: 20190701
